FAERS Safety Report 25890813 (Version 1)
Quarter: 2025Q4

REPORT INFORMATION
  Report Type: Spontaneous
  Country: US (occurrence: US)
  Receive Date: 20251007
  Receipt Date: 20251007
  Transmission Date: 20260118
  Serious: No
  Sender: PADAGIS
  Company Number: US-PADAGIS-2025PAD01233

PATIENT

DRUGS (7)
  1. HYDROCORTISONE [Suspect]
     Active Substance: HYDROCORTISONE
     Indication: Perioral dermatitis
     Dosage: UNK
     Route: 065
  2. TACROLIMUS [Suspect]
     Active Substance: TACROLIMUS
     Indication: Perioral dermatitis
     Dosage: UNK
     Route: 061
  3. KETOCONAZOLE [Suspect]
     Active Substance: KETOCONAZOLE
     Indication: Perioral dermatitis
     Dosage: UNK
     Route: 065
  4. PIMECROLIMUS [Suspect]
     Active Substance: PIMECROLIMUS
     Indication: Perioral dermatitis
     Dosage: UNK
     Route: 065
  5. DESONIDE [Suspect]
     Active Substance: DESONIDE
     Indication: Perioral dermatitis
     Dosage: UNK
     Route: 065
  6. CRISABOROLE [Suspect]
     Active Substance: CRISABOROLE
     Indication: Perioral dermatitis
     Dosage: UNK
     Route: 065
  7. NYSTATIN [Suspect]
     Active Substance: NYSTATIN
     Indication: Perioral dermatitis
     Dosage: UNK
     Route: 065

REACTIONS (1)
  - Treatment failure [Unknown]
